FAERS Safety Report 6809535-5 (Version None)
Quarter: 2010Q2

REPORT INFORMATION
  Report Type: 
  Country: None (occurrence: None)
  Receive Date: 20100630
  Receipt Date: 20100617
  Transmission Date: 20101027
  Serious: Yes (Hospitalization)
  Sender: FDA-Public Use
  Company Number: PHFR2010GB01062

PATIENT
  Sex: Male

DRUGS (3)
  1. CLOZARIL [Suspect]
     Indication: SCHIZOPHRENIA
     Dosage: 700 MG
     Route: 048
     Dates: start: 20090324, end: 20100311
  2. CLOZARIL [Suspect]
     Dosage: 300 MG
     Route: 048
     Dates: start: 20100312
  3. CLOZARIL [Suspect]
     Dosage: 700 MG
     Route: 048

REACTIONS (3)
  - ABNORMAL BEHAVIOUR [None]
  - ASPERGER'S DISORDER [None]
  - INCORRECT DOSE ADMINISTERED [None]
